FAERS Safety Report 5525770-0 (Version None)
Quarter: 2007Q4

REPORT INFORMATION
  Report Type: 
  Country: None (occurrence: None)
  Receive Date: 20071126
  Receipt Date: 20071119
  Transmission Date: 20080405
  Serious: Yes (Death)
  Sender: FDA-Public Use
  Company Number: SE-ASTRAZENECA-2005SE02872

PATIENT
  Age: 3 Month
  Sex: Female
  Weight: 3.1 kg

DRUGS (2)
  1. XYLOCARD [Suspect]
     Indication: CONVULSION
     Route: 041
  2. FENEMAL [Concomitant]

REACTIONS (4)
  - ACCIDENTAL OVERDOSE [None]
  - CARDIAC FAILURE ACUTE [None]
  - MEDICATION ERROR [None]
  - SHOCK [None]
